FAERS Safety Report 25674666 (Version 1)
Quarter: 2025Q3

REPORT INFORMATION
  Report Type: Spontaneous
  Country: US (occurrence: US)
  Receive Date: 20250813
  Receipt Date: 20250813
  Transmission Date: 20251020
  Serious: Yes (Hospitalization, Other)
  Sender: RANBAXY
  Company Number: US-SUN PHARMACEUTICAL INDUSTRIES LTD-2025R1-521951

PATIENT
  Age: 41 Year
  Sex: Female

DRUGS (3)
  1. WARFARIN [Suspect]
     Active Substance: WARFARIN
     Indication: Deep vein thrombosis
     Route: 065
  2. WARFARIN [Suspect]
     Active Substance: WARFARIN
     Indication: Pulmonary embolism
  3. WARFARIN [Suspect]
     Active Substance: WARFARIN
     Indication: Factor V Leiden mutation

REACTIONS (2)
  - Pulmonary alveolar haemorrhage [Recovering/Resolving]
  - Anticoagulation drug level above therapeutic [Recovering/Resolving]
